FAERS Safety Report 5011769-X (Version None)
Quarter: 2006Q2

REPORT INFORMATION
  Report Type: 
  Country: None (occurrence: None)
  Receive Date: 20060526
  Receipt Date: 20060518
  Transmission Date: 20061013
  Serious: Yes (Other)
  Sender: FDA-Public Use
  Company Number: US-JNJFOC-20060504040

PATIENT
  Sex: Female
  Weight: 80.29 kg

DRUGS (5)
  1. RISPERDAL [Suspect]
     Indication: THINKING ABNORMAL
     Route: 048
  2. RISPERDAL [Suspect]
     Indication: BIPOLAR DISORDER
     Dosage: 1 MG TABLETS, TAKEN AT BEDTIME
     Route: 048
  3. ZOLOFT [Concomitant]
     Indication: DEPRESSION
  4. ZESTRIL [Concomitant]
     Indication: BLOOD PRESSURE
  5. NIACIN NO FLUSH [Concomitant]
     Dosage: ^500^

REACTIONS (5)
  - ANAEMIA [None]
  - CENTRAL NERVOUS SYSTEM STIMULATION [None]
  - HALLUCINATION [None]
  - INSOMNIA [None]
  - NIGHTMARE [None]
